FAERS Safety Report 23565364 (Version 2)
Quarter: 2024Q1

REPORT INFORMATION
  Report Type: Spontaneous
  Country: US (occurrence: US)
  Receive Date: 20240226
  Receipt Date: 20240307
  Transmission Date: 20240410
  Serious: Yes (Other)
  Sender: FDA-Public Use
  Company Number: US-BRISTOL-MYERS SQUIBB COMPANY-2024-030390

PATIENT
  Age: 74 Year
  Sex: Female

DRUGS (1)
  1. POMALYST [Suspect]
     Active Substance: POMALIDOMIDE
     Indication: Plasma cell myeloma
     Dosage: DAILY FOR 21 DAYS THEN 7 DAYS OFF
     Route: 048

REACTIONS (7)
  - Respiratory tract congestion [Unknown]
  - Peripheral swelling [Unknown]
  - Facial paralysis [Unknown]
  - Seasonal allergy [Unknown]
  - Pollakiuria [Unknown]
  - Back pain [Unknown]
  - Arthralgia [Unknown]
